FAERS Safety Report 8102576-X (Version None)
Quarter: 2012Q1

REPORT INFORMATION
  Report Type: 
  Country: None (occurrence: None)
  Receive Date: 20120126
  Receipt Date: 20120114
  Transmission Date: 20120608
  Serious: Yes (Hospitalization)
  Sender: FDA-Public Use
  Company Number: 2012AP000121

PATIENT
  Age: 38 Year
  Sex: Female

DRUGS (3)
  1. ACETAMINOPHEN AND HYDROCODONE BITARTRATE [Suspect]
     Indication: ABDOMINAL PAIN
     Dosage: PRN
     Route: 051
  2. RANITIDINE HCL [Suspect]
     Indication: PRODUCT USED FOR UNKNOWN INDICATION
     Dosage: 150 MG;QD
  3. HYDROXYCITRIC ACID [Suspect]
     Indication: WEIGHT CONTROL
     Dosage: 500 MG;5XW

REACTIONS (7)
  - HAEMODIALYSIS [None]
  - NEPHROPATHY [None]
  - VOMITING [None]
  - HYPERTENSION [None]
  - NAUSEA [None]
  - ABDOMINAL PAIN [None]
  - RENAL FAILURE ACUTE [None]
